FAERS Safety Report 21738796 (Version 1)
Quarter: 2022Q4

REPORT INFORMATION
  Report Type: Spontaneous
  Country: CN (occurrence: CN)
  Receive Date: 20221216
  Receipt Date: 20221216
  Transmission Date: 20230112
  Serious: Yes (Other)
  Sender: FDA-Public Use
  Company Number: CN-SUN PHARMACEUTICAL INDUSTRIES LTD-2022R1-367903

PATIENT
  Age: 13 Year
  Sex: Male

DRUGS (3)
  1. OXCARBAZEPINE [Suspect]
     Active Substance: OXCARBAZEPINE
     Indication: Epilepsy
     Dosage: UNK (0.075, Q12H)
     Route: 065
     Dates: start: 20170513
  2. OXCARBAZEPINE [Suspect]
     Active Substance: OXCARBAZEPINE
     Dosage: UNK (0.15, Q12H)
     Route: 065
     Dates: end: 201808
  3. VALPROIC ACID [Concomitant]
     Active Substance: VALPROIC ACID
     Indication: Epilepsy
     Dosage: UNK (5 ML, Q12H)
     Route: 065
     Dates: start: 20160325, end: 201808

REACTIONS (3)
  - Long QT syndrome [Recovered/Resolved]
  - Torsade de pointes [Recovered/Resolved]
  - Disease recurrence [Unknown]

NARRATIVE: CASE EVENT DATE: 20210812
